FAERS Safety Report 9678284 (Version 2)
Quarter: 2014Q1

REPORT INFORMATION
  Report Type: Spontaneous
  Country: US (occurrence: US)
  Receive Date: 20131108
  Receipt Date: 20140207
  Transmission Date: 20141002
  Serious: No
  Sender: FDA-Public Use
  Company Number: US-009507513-1311USA003200

PATIENT
  Sex: Female
  Weight: 58.5 kg

DRUGS (9)
  1. OXYTROL FOR WOMEN [Suspect]
     Indication: HYPERTONIC BLADDER
     Dosage: 1 DF, Q4D
     Route: 062
     Dates: start: 20131026, end: 20131113
  2. PROAIR (ALBUTEROL SULFATE) [Concomitant]
     Indication: ASTHMA
     Dosage: UNK, UNKNOWN
  3. QVAR [Concomitant]
     Indication: ASTHMA
     Dosage: UNK, UNKNOWN
  4. FLUTICASONE [Concomitant]
     Indication: ASTHMA
     Dosage: UNK, UNKNOWN
  5. CLOBETASOL PROPIONATE [Concomitant]
     Indication: PSORIASIS
     Dosage: UNK, UNKNOWN
  6. FLUOCINONIDE [Concomitant]
     Indication: PSORIASIS
     Dosage: UNK, UNKNOWN
  7. HYDROCORTISONE [Concomitant]
     Indication: PSORIASIS
     Dosage: UNK, UNKNOWN
  8. LEVOTHYROXINE SODIUM [Concomitant]
     Indication: HYPOTHYROIDISM
     Dosage: 85 MICROGRAM, UNKNOWN
  9. OXYBUTYNIN [Concomitant]
     Indication: BLADDER PAIN
     Dosage: 5 MG, UNKNOWN

REACTIONS (3)
  - Skin irritation [Recovered/Resolved]
  - Drug ineffective [Unknown]
  - Product packaging issue [Unknown]
